FAERS Safety Report 8864801 (Version 1)
Quarter: 2012Q4

REPORT INFORMATION
  Report Type: 
  Country: US (occurrence: US)
  Receive Date: 20121024
  Receipt Date: 20121024
  Transmission Date: 20130627
  Serious: No
  Sender: FDA-Public Use
  Company Number: US-AMGEN-USASP2011069356

PATIENT
  Sex: Female

DRUGS (1)
  1. ENBREL [Suspect]
     Indication: PSORIATIC ARTHROPATHY
     Dosage: 50 mg, qwk
     Dates: start: 20040101, end: 2006

REACTIONS (6)
  - Pain [Unknown]
  - Inflammation [Unknown]
  - Nodule [Unknown]
  - Nail pitting [Unknown]
  - Arthropathy [Unknown]
  - Drug ineffective [Unknown]
